FAERS Safety Report 8410747-8 (Version None)
Quarter: 2012Q2

REPORT INFORMATION
  Report Type: 
  Country: None (occurrence: None)
  Receive Date: 20120605
  Receipt Date: 20120525
  Transmission Date: 20120825
  Serious: Yes (Death, Hospitalization)
  Sender: FDA-Public Use
  Company Number: US-NOVOPROD-348094

PATIENT
  Age: 5 Month
  Sex: Male
  Weight: 5.569 kg

DRUGS (7)
  1. HEPARIN LOCK-FLUSH [Concomitant]
     Indication: PRODUCT USED FOR UNKNOWN INDICATION
  2. SUCROSE [Concomitant]
     Indication: PRODUCT USED FOR UNKNOWN INDICATION
     Route: 048
  3. NOVOSEVEN RT [Suspect]
     Indication: FACTOR VIII DEFICIENCY
     Dosage: 0.38 MG, QD
     Route: 042
     Dates: end: 20120108
  4. PROTONIX [Concomitant]
     Indication: PRODUCT USED FOR UNKNOWN INDICATION
     Dosage: 2.96 MG, UNK
     Route: 058
  5. PEDIALYTE                          /00921901/ [Concomitant]
     Indication: PRODUCT USED FOR UNKNOWN INDICATION
  6. EMLA [Concomitant]
     Indication: PRODUCT USED FOR UNKNOWN INDICATION
  7. CARAFATE [Concomitant]
     Indication: PRODUCT USED FOR UNKNOWN INDICATION
     Dosage: 100 MG/ML, UNK

REACTIONS (1)
  - DEATH [None]
